FAERS Safety Report 14939809 (Version 1)
Quarter: 2018Q2

REPORT INFORMATION
  Report Type: Spontaneous
  Country: JP (occurrence: JP)
  Receive Date: 20180525
  Receipt Date: 20180525
  Transmission Date: 20180711
  Serious: Yes (Other)
  Sender: FDA-Public Use
  Company Number: JP-ANIPHARMA-2018-JP-000078

PATIENT
  Sex: Male

DRUGS (2)
  1. CASODEX [Suspect]
     Active Substance: BICALUTAMIDE
     Indication: PROSTATE CANCER
     Dosage: 80 MG QD
     Route: 048
  2. LEUPLIN [Concomitant]
     Active Substance: LEUPROLIDE ACETATE

REACTIONS (1)
  - Breast cancer male [Unknown]

NARRATIVE: CASE EVENT DATE: 20180514
